FAERS Safety Report 7249257-2 (Version None)
Quarter: 2011Q1

REPORT INFORMATION
  Report Type: 
  Country: None (occurrence: None)
  Receive Date: 20110128
  Receipt Date: 20101207
  Transmission Date: 20110831
  Serious: Yes (Hospitalization)
  Sender: FDA-Public Use
  Company Number: SE-BAYER-2010-001931

PATIENT
  Sex: Female

DRUGS (2)
  1. ROACCUTAN [Suspect]
     Indication: ACNE
     Dosage: UNK
     Route: 048
     Dates: start: 20100127, end: 20101022
  2. YASMIN [Suspect]
     Dosage: UNK
     Route: 048
     Dates: start: 20100128, end: 20101011

REACTIONS (1)
  - PULMONARY EMBOLISM [None]
